FAERS Safety Report 6044764-2 (Version None)
Quarter: 2009Q1

REPORT INFORMATION
  Report Type: 
  Country: None (occurrence: None)
  Receive Date: 20090120
  Receipt Date: 20090112
  Transmission Date: 20090719
  Serious: No
  Sender: FDA-Public Use
  Company Number: US-B.I. PHARMACEUTICALS,INC./RIDGEFIELD-2009-BP-00382BP

PATIENT
  Age: 75 Year
  Sex: Female

DRUGS (8)
  1. MIRAPEX [Suspect]
     Indication: RESTLESS LEGS SYNDROME
     Dosage: .25MG
     Route: 048
     Dates: start: 20080901
  2. PERCOCET [Concomitant]
     Indication: ARTHRALGIA
  3. LISINOPRIL [Concomitant]
     Indication: BLOOD PRESSURE INCREASED
  4. REGLAN [Concomitant]
     Indication: DYSPHAGIA
  5. FUROSEMIDE [Concomitant]
     Indication: BLOOD PRESSURE INCREASED
  6. AMATIZA [Concomitant]
     Indication: ABDOMINAL DISCOMFORT
  7. EFFEXOR [Concomitant]
     Indication: DEPRESSION
  8. REMERON [Concomitant]
     Indication: DEPRESSION

REACTIONS (1)
  - DRUG INEFFECTIVE [None]
